FAERS Safety Report 7161686-4 (Version None)
Quarter: 2010Q4

REPORT INFORMATION
  Report Type: 
  Country: None (occurrence: None)
  Receive Date: 20101215
  Receipt Date: 20101210
  Transmission Date: 20110411
  Serious: Yes (Other)
  Sender: FDA-Public Use
  Company Number: GB-TEVA-252945ISR

PATIENT
  Age: 17 Year
  Sex: Female

DRUGS (4)
  1. CARBAMAZEPINE [Suspect]
     Indication: AFFECTIVE DISORDER
     Dates: start: 20100906, end: 20101006
  2. CLOZAPINE [Interacting]
     Indication: SCHIZOAFFECTIVE DISORDER
     Route: 048
     Dates: start: 20100616
  3. CLOZAPINE [Interacting]
     Route: 048
     Dates: end: 20101005
  4. CLOZAPINE [Interacting]
     Route: 048
     Dates: end: 20101005

REACTIONS (10)
  - AGITATION [None]
  - ANTIPSYCHOTIC DRUG LEVEL BELOW THERAPEUTIC [None]
  - DRUG INTERACTION [None]
  - FEBRILE CONVULSION [None]
  - HIPPOCAMPAL SCLEROSIS [None]
  - MENTAL IMPAIRMENT [None]
  - PETIT MAL EPILEPSY [None]
  - RESTLESSNESS [None]
  - SUICIDAL IDEATION [None]
  - TREATMENT NONCOMPLIANCE [None]
